FAERS Safety Report 7852437-6 (Version None)
Quarter: 2011Q4

REPORT INFORMATION
  Report Type: 
  Country: None (occurrence: None)
  Receive Date: 20111026
  Receipt Date: 20111014
  Transmission Date: 20120403
  Serious: Yes (Hospitalization)
  Sender: FDA-Public Use
  Company Number: US-JNJFOC-20111006866

PATIENT
  Age: 47 Year
  Sex: Female
  Weight: 77.11 kg

DRUGS (2)
  1. VISINE II EYE DROPS [Suspect]
     Route: 048
  2. VISINE II EYE DROPS [Suspect]
     Indication: PRODUCT USED FOR UNKNOWN INDICATION
     Route: 048
     Dates: start: 20111007

REACTIONS (5)
  - DEHYDRATION [None]
  - INCORRECT ROUTE OF DRUG ADMINISTRATION [None]
  - POISONING [None]
  - ABDOMINAL PAIN UPPER [None]
  - NAUSEA [None]
